FAERS Safety Report 8884361 (Version 1)
Quarter: 2012Q4

REPORT INFORMATION
  Report Type: 
  Country: US (occurrence: US)
  Receive Date: 20121102
  Receipt Date: 20121102
  Transmission Date: 20130627
  Serious: No
  Sender: FDA-Public Use
  Company Number: US-ASTRAZENECA-2012SE22031

PATIENT
  Age: 59 Year
  Sex: Female
  Weight: 91 kg

DRUGS (8)
  1. CRESTOR [Suspect]
     Route: 048
  2. PLAVIX [Suspect]
     Route: 048
     Dates: start: 20110322, end: 201203
  3. PLAVIX [Suspect]
     Route: 048
     Dates: start: 201203
  4. ATIVAN [Concomitant]
  5. TYLENOL [Concomitant]
  6. ZANTAC [Concomitant]
  7. CARAFATE [Concomitant]
  8. PROTONIX [Concomitant]

REACTIONS (11)
  - Chest pain [Unknown]
  - Back pain [Unknown]
  - Swelling [Unknown]
  - Dyspepsia [Unknown]
  - Increased tendency to bruise [Unknown]
  - Condition aggravated [Unknown]
  - Seasonal allergy [Unknown]
  - Asthenia [Unknown]
  - Dizziness [Unknown]
  - Headache [Unknown]
  - Depressed mood [Unknown]
